FAERS Safety Report 6269766-2 (Version None)
Quarter: 2009Q3

REPORT INFORMATION
  Report Type: 
  Country: None (occurrence: None)
  Receive Date: 20090716
  Receipt Date: 20090708
  Transmission Date: 20100115
  Serious: Yes (Other)
  Sender: FDA-Public Use
  Company Number: CH-SOLVAY-00209003722

PATIENT
  Age: 49 Year
  Sex: Female

DRUGS (3)
  1. VENEFOR [Concomitant]
     Indication: IRON DEFICIENCY ANAEMIA
     Dosage: DAILY DOSE:  UNKNOWN
     Route: 065
  2. UTROGESTAN [Suspect]
     Indication: MENORRHAGIA
     Dosage: DAILY DOSE: 100 MILLIGRAM(S)
     Route: 048
     Dates: start: 20081001, end: 20081201
  3. FERINJECT [Suspect]
     Indication: IRON DEFICIENCY ANAEMIA
     Dosage: DAILY DOSE:  UNKNOWN; AS USED: 500 MG; FREQUENCY: ONCE
     Route: 042
     Dates: start: 20081203, end: 20081203

REACTIONS (1)
  - RETINOPATHY [None]
